FAERS Safety Report 25119631 (Version 1)
Quarter: 2025Q1

REPORT INFORMATION
  Report Type: Report from Study
  Country: CN (occurrence: CN)
  Receive Date: 20250325
  Receipt Date: 20250325
  Transmission Date: 20250408
  Serious: Yes (Death, Other)
  Sender: SANOFI AVENTIS
  Company Number: CN-SA-2025SA085933

PATIENT

DRUGS (3)
  1. OXALIPLATIN [Suspect]
     Active Substance: OXALIPLATIN
     Indication: Gastric cancer
     Route: 042
  2. CAPECITABINE [Suspect]
     Active Substance: CAPECITABINE
     Indication: Gastric cancer
     Dosage: 1000 MG, QD, TWICE DAILY ON DAYS 1-14, EVERY 21 DAYS
     Route: 048
  3. SUGEMALIMAB [Suspect]
     Active Substance: SUGEMALIMAB
     Indication: Gastric cancer
     Route: 042

REACTIONS (2)
  - Pneumonia [Fatal]
  - Off label use [Unknown]
